FAERS Safety Report 20057690 (Version 2)
Quarter: 2021Q4

REPORT INFORMATION
  Report Type: Spontaneous
  Country: HK (occurrence: HK)
  Receive Date: 20211111
  Receipt Date: 20211124
  Transmission Date: 20220303
  Serious: Yes (Other)
  Sender: FDA-Public Use
  Company Number: HK-GUERBET-HK-20210011

PATIENT
  Age: 57 Year
  Sex: Female

DRUGS (2)
  1. LIPIODOL [Suspect]
     Active Substance: ETHIODIZED OIL
     Indication: Therapeutic embolisation
     Dosage: 0.7 ML OF LIPIODOL IN MIXTURE WITH TWO VIALS OF 0.5 ML OF HISTOACRYL GLUE
     Route: 065
     Dates: start: 20201020, end: 20201020
  2. HISTOACRYL [Suspect]
     Active Substance: ENBUCRILATE
     Indication: Therapeutic embolisation
     Dosage: 0.7 ML OF LIPIODOL IN MIXTURE WITH TWO VIALS OF 0.5 ML OF HISTOACRYL GLUE
     Route: 065
     Dates: start: 20201020, end: 20201020

REACTIONS (3)
  - Embolism [Recovered/Resolved]
  - Ischaemic hepatitis [Recovered/Resolved]
  - Product use in unapproved indication [Recovered/Resolved]

NARRATIVE: CASE EVENT DATE: 20201020
